FAERS Safety Report 18405473 (Version 6)
Quarter: 2020Q4

REPORT INFORMATION
  Report Type: Spontaneous
  Country: US (occurrence: US)
  Receive Date: 20201020
  Receipt Date: 20201210
  Transmission Date: 20210114
  Serious: No
  Sender: FDA-Public Use
  Company Number: US-PFIZER INC-2020321162

PATIENT
  Age: 12 Year
  Sex: Female
  Weight: 43.08 kg

DRUGS (2)
  1. RITALIN [Concomitant]
     Active Substance: METHYLPHENIDATE HYDROCHLORIDE
     Indication: PSYCHOMOTOR HYPERACTIVITY
     Dosage: 27 MG, DAILY
     Route: 048
  2. GENOTROPIN [Suspect]
     Active Substance: SOMATROPIN
     Indication: SHORT STATURE
     Dosage: 0.4 MG
     Dates: start: 202007

REACTIONS (3)
  - Needle issue [Unknown]
  - Dose calculation error [Unknown]
  - Drug dose omission by device [Unknown]
